FAERS Safety Report 9919774 (Version 1)
Quarter: 2014Q1

REPORT INFORMATION
  Report Type: Spontaneous
  Country: US (occurrence: US)
  Receive Date: 20140224
  Receipt Date: 20140224
  Transmission Date: 20141002
  Serious: No
  Sender: FDA-Public Use
  Company Number: US-PFIZER INC-2014050289

PATIENT
  Age: 69 Year
  Sex: Male
  Weight: 106.58 kg

DRUGS (2)
  1. LYRICA [Suspect]
     Indication: NEUROPATHY PERIPHERAL
     Dosage: 275 MG, DAILY (100MG IN MORNING, 75 MG IN AFTERNOON AND 100MG AT NIGHT)
     Dates: start: 2013
  2. CRESTOR [Concomitant]
     Indication: BLOOD CHOLESTEROL ABNORMAL
     Dosage: 20 MG, 1X/DAY

REACTIONS (3)
  - Intentional drug misuse [Unknown]
  - Alcohol interaction [Unknown]
  - Vision blurred [Recovered/Resolved]
